FAERS Safety Report 8331808-8 (Version None)
Quarter: 2012Q2

REPORT INFORMATION
  Report Type: 
  Country: None (occurrence: None)
  Receive Date: 20120502
  Receipt Date: 20120423
  Transmission Date: 20120825
  Serious: No
  Sender: FDA-Public Use
  Company Number: US-AMGEN-USASP2012020038

PATIENT
  Age: 57 Year
  Sex: Female
  Weight: 88.889 kg

DRUGS (1)
  1. ENBREL [Suspect]
     Indication: RHEUMATOID ARTHRITIS
     Dosage: 50 MG, QWK
     Dates: start: 20060907

REACTIONS (3)
  - INJECTION SITE PAIN [None]
  - INJECTION SITE DISCOMFORT [None]
  - INCORRECT DOSE ADMINISTERED [None]
